FAERS Safety Report 14281167 (Version 1)
Quarter: 2017Q4

REPORT INFORMATION
  Report Type: Spontaneous
  Country: FR (occurrence: FR)
  Receive Date: 20171213
  Receipt Date: 20171213
  Transmission Date: 20180321
  Serious: Yes (Disabling)
  Sender: FDA-Public Use
  Company Number: FR-AUROBINDO-AUR-APL-2017-45048

PATIENT
  Age: 37 Year
  Sex: Male
  Weight: 90 kg

DRUGS (19)
  1. PAROXETINE. [Suspect]
     Active Substance: PAROXETINE
     Indication: PRODUCT USED FOR UNKNOWN INDICATION
     Dosage: ()
     Route: 065
     Dates: start: 20110201
  2. DOMPERIDONE [Concomitant]
     Active Substance: DOMPERIDONE
     Dosage: ()
     Route: 065
     Dates: start: 20110531
  3. SPIFEN [Concomitant]
     Active Substance: IBUPROFEN
     Indication: PRODUCT USED FOR UNKNOWN INDICATION
     Dosage: ()
     Route: 065
     Dates: start: 20110705
  4. MIOREL (THIOCOLCHICOSIDE) [Concomitant]
     Active Substance: THIOCOLCHICOSIDE
     Indication: PRODUCT USED FOR UNKNOWN INDICATION
     Dosage: ()
     Route: 065
     Dates: start: 20101213
  5. MIOREL (THIOCOLCHICOSIDE) [Concomitant]
     Active Substance: THIOCOLCHICOSIDE
     Dosage: ()
     Route: 065
     Dates: start: 20101210
  6. TANGANIL [Concomitant]
     Active Substance: ACETYLLEUCINE
     Indication: PRODUCT USED FOR UNKNOWN INDICATION
     Dosage: ()
     Route: 065
     Dates: start: 20110303
  7. DERINOX                            /06053201/ [Concomitant]
     Active Substance: NAPHAZOLINE NITRATE\PREDNISOLONE
     Indication: PRODUCT USED FOR UNKNOWN INDICATION
     Dosage: ()
     Route: 065
     Dates: start: 20110531
  8. TEMERIT [Concomitant]
     Active Substance: NEBIVOLOL
     Indication: PRODUCT USED FOR UNKNOWN INDICATION
     Dosage: ()
     Route: 065
     Dates: start: 20110718
  9. TRIMEBUTINE [Concomitant]
     Active Substance: TRIMEBUTINE
     Indication: PRODUCT USED FOR UNKNOWN INDICATION
     Dosage: ()
     Route: 065
     Dates: start: 20110531
  10. DIANTALVIC [Suspect]
     Active Substance: ACETAMINOPHEN\PROPOXYPHENE
     Indication: PRODUCT USED FOR UNKNOWN INDICATION
     Dosage: ()
     Route: 065
     Dates: start: 20100606
  11. TETRAZEPAM [Suspect]
     Active Substance: TETRAZEPAM
     Indication: PRODUCT USED FOR UNKNOWN INDICATION
     Dosage: ()
     Route: 065
     Dates: start: 20110705
  12. RIVOTRIL [Suspect]
     Active Substance: CLONAZEPAM
     Dosage: ()
     Route: 048
     Dates: start: 20110718
  13. SPIFEN [Concomitant]
     Active Substance: IBUPROFEN
     Dosage: ()
     Route: 065
     Dates: start: 20110531
  14. PANTOPRAZOLE [Concomitant]
     Active Substance: PANTOPRAZOLE
     Indication: PRODUCT USED FOR UNKNOWN INDICATION
     Dosage: ()
     Route: 065
     Dates: start: 20110303
  15. NUREFLEX [Concomitant]
     Active Substance: IBUPROFEN
     Indication: PRODUCT USED FOR UNKNOWN INDICATION
     Dosage: ()
     Route: 065
     Dates: start: 20101213
  16. ULTRA LEVURE [Concomitant]
     Active Substance: SACCHAROMYCES CEREVISIAE
     Indication: PRODUCT USED FOR UNKNOWN INDICATION
     Dosage: ()
     Route: 065
     Dates: start: 20110531
  17. DOMPERIDONE [Concomitant]
     Active Substance: DOMPERIDONE
     Indication: PRODUCT USED FOR UNKNOWN INDICATION
     Dosage: ()
     Route: 065
     Dates: start: 20110303
  18. DOLIPRANE [Concomitant]
     Active Substance: ACETAMINOPHEN
     Indication: PRODUCT USED FOR UNKNOWN INDICATION
     Dosage: ()
     Route: 065
     Dates: start: 20101213
  19. RIVOTRIL [Suspect]
     Active Substance: CLONAZEPAM
     Indication: PAIN
     Dosage: ()
     Route: 048
     Dates: start: 20110219

REACTIONS (26)
  - Tachycardia [Unknown]
  - Agoraphobia [Recovered/Resolved]
  - Anxiety [Recovered/Resolved]
  - Panic attack [Recovered/Resolved]
  - Hypomania [Unknown]
  - Memory impairment [Recovered/Resolved]
  - Tinnitus [Recovered/Resolved]
  - Supraventricular extrasystoles [Not Recovered/Not Resolved]
  - Off label use [Unknown]
  - Pain in extremity [Unknown]
  - Hallucination, auditory [Recovered/Resolved]
  - Neurosis [Not Recovered/Not Resolved]
  - Disturbance in attention [Unknown]
  - Hallucination, visual [Unknown]
  - Dyspnoea exertional [Unknown]
  - Insomnia [Unknown]
  - Vertigo [Unknown]
  - Affect lability [Unknown]
  - Palpitations [Unknown]
  - Asthenia [Unknown]
  - Accommodation disorder [Recovered/Resolved]
  - Product use in unapproved indication [Unknown]
  - Presyncope [Unknown]
  - Irritability [Unknown]
  - Photophobia [Recovered/Resolved]
  - Erectile dysfunction [Not Recovered/Not Resolved]
